FAERS Safety Report 7403190-1 (Version None)
Quarter: 2011Q2

REPORT INFORMATION
  Report Type: 
  Country: None (occurrence: None)
  Receive Date: 20110408
  Receipt Date: 20110401
  Transmission Date: 20111010
  Serious: Yes (Death, Hospitalization, Other)
  Sender: FDA-Public Use
  Company Number: JP-JNJFOC-20110304586

PATIENT
  Sex: Male
  Weight: 48 kg

DRUGS (30)
  1. AKINETON [Concomitant]
     Indication: PARKINSONISM
     Route: 048
  2. AKINETON [Concomitant]
     Route: 048
  3. GASMET [Concomitant]
     Route: 048
  4. INVEGA [Suspect]
     Indication: HALLUCINATION
     Route: 048
  5. GASMET [Concomitant]
     Indication: GASTRITIS
     Route: 048
  6. MAGLAX [Concomitant]
     Indication: CONSTIPATION
     Route: 048
  7. SOFMIN AMEL [Concomitant]
     Indication: HALLUCINATION
     Route: 048
  8. CARBAMAZEPINE [Concomitant]
     Indication: AGITATION
     Route: 048
  9. SENNOSIDE [Concomitant]
     Indication: CONSTIPATION
     Route: 048
  10. LAXATIVE [Concomitant]
     Route: 065
  11. INVEGA [Suspect]
     Indication: AGITATION
     Route: 048
  12. INVEGA [Suspect]
     Route: 048
  13. SORENTMIN [Concomitant]
     Indication: AGITATION
     Route: 048
  14. SORENTMIN [Concomitant]
     Indication: HALLUCINATION
     Route: 048
  15. SOFMIN AMEL [Concomitant]
     Indication: AGITATION
     Route: 048
  16. SOFMIN AMEL [Concomitant]
     Route: 048
  17. DIAZEPAM [Concomitant]
     Route: 048
  18. CARBAMAZEPINE [Concomitant]
     Route: 048
  19. INVEGA [Suspect]
     Route: 048
  20. CONTOMIN [Concomitant]
     Route: 048
  21. DIAZEPAM [Concomitant]
     Indication: AGITATION
     Route: 048
  22. DIAZEPAM [Concomitant]
     Indication: HALLUCINATION
     Route: 048
  23. CARBAMAZEPINE [Concomitant]
     Route: 048
  24. RISPERIDONE [Suspect]
     Indication: PRODUCT USED FOR UNKNOWN INDICATION
     Route: 048
  25. DAI-KENCHU-TO [Concomitant]
     Indication: CONSTIPATION
     Route: 048
  26. FLUNITRAZEPAM [Concomitant]
     Indication: AGITATION
     Route: 048
  27. FLUNITRAZEPAM [Concomitant]
     Indication: HALLUCINATION
     Route: 048
  28. SOFMIN AMEL [Concomitant]
     Route: 048
  29. DIAZEPAM [Concomitant]
     Route: 048
  30. CARBAMAZEPINE [Concomitant]
     Indication: HALLUCINATION
     Route: 048

REACTIONS (6)
  - SALIVARY HYPERSECRETION [None]
  - FALL [None]
  - ABNORMAL BEHAVIOUR [None]
  - PNEUMONIA [None]
  - CARDIAC ARREST [None]
  - CONSTIPATION [None]
